FAERS Safety Report 24540373 (Version 1)
Quarter: 2024Q4

REPORT INFORMATION
  Report Type: Spontaneous
  Country: IN (occurrence: None)
  Receive Date: 20241023
  Receipt Date: 20241023
  Transmission Date: 20250114
  Serious: Yes (Other)
  Sender: Public
  Company Number: None

PATIENT
  Age: 26 Day
  Sex: Male
  Weight: 90 kg

DRUGS (1)
  1. CEFIXIME\CLAVULANATE POTASSIUM [Suspect]
     Active Substance: CEFIXIME\CLAVULANATE POTASSIUM
     Dosage: FREQUENCY : TWICE A DAY;?
     Route: 048
     Dates: start: 20241017, end: 20241022

REACTIONS (1)
  - Eye pain [None]

NARRATIVE: CASE EVENT DATE: 20241020
